FAERS Safety Report 6368426-7 (Version None)
Quarter: 2009Q3

REPORT INFORMATION
  Report Type: 
  Country: None (occurrence: None)
  Receive Date: 20090915
  Receipt Date: 20090804
  Transmission Date: 20100115
  Serious: No
  Sender: FDA-Public Use
  Company Number: 2009US000016

PATIENT
  Age: 64 Year
  Sex: Female

DRUGS (1)
  1. ENTEREG [Suspect]
     Indication: POSTOPERATIVE ILEUS
     Dosage: 12 MG; RID; PO
     Route: 048

REACTIONS (2)
  - DIARRHOEA [None]
  - INTESTINAL ISCHAEMIA [None]
